FAERS Safety Report 9288224 (Version 2)
Quarter: 2013Q2

REPORT INFORMATION
  Report Type: Report from Study
  Country: US (occurrence: US)
  Receive Date: 20130514
  Receipt Date: 20130624
  Transmission Date: 20140414
  Serious: Yes (Other)
  Sender: FDA-Public Use
  Company Number: US-SANOFI-AVENTIS-2013SA021831

PATIENT
  Age: 33 Year
  Sex: Male

DRUGS (3)
  1. AUBAGIO [Suspect]
     Indication: PRODUCT USED FOR UNKNOWN INDICATION
     Dosage: THERAPY END DATE - ABOUT THREE MONTHS
     Route: 048
     Dates: start: 20130218
  2. AUBAGIO [Suspect]
     Indication: PRODUCT USED FOR UNKNOWN INDICATION
     Route: 048
     Dates: start: 2013, end: 2013
  3. FAMPRIDINE [Suspect]
     Indication: PRODUCT USED FOR UNKNOWN INDICATION
     Dates: start: 20101230

REACTIONS (11)
  - Disease progression [Unknown]
  - Drug ineffective [Unknown]
  - Constipation [Not Recovered/Not Resolved]
  - Functional gastrointestinal disorder [Unknown]
  - Mood altered [Unknown]
  - Urine output decreased [Not Recovered/Not Resolved]
  - Oedema peripheral [Not Recovered/Not Resolved]
  - Depressed mood [Not Recovered/Not Resolved]
  - Irritability [Not Recovered/Not Resolved]
  - Dyspnoea [Not Recovered/Not Resolved]
  - Aptyalism [Unknown]
